FAERS Safety Report 23235046 (Version 1)
Quarter: 2023Q4

REPORT INFORMATION
  Report Type: Spontaneous
  Country: US (occurrence: None)
  Receive Date: 20231127
  Receipt Date: 20231127
  Transmission Date: 20240110
  Serious: Yes (Disabling)
  Sender: FDA-Public Use
  Company Number: None

PATIENT
  Age: 20 Year
  Sex: Male
  Weight: 69.75 kg

DRUGS (2)
  1. QBREXZA [Suspect]
     Active Substance: GLYCOPYRRONIUM TOSYLATE
     Indication: Hyperhidrosis
     Dosage: OTHER QUANTITY : 30 CLOTHES;?FREQUENCY : AT BEDTIME;?
     Route: 061
     Dates: start: 20231009, end: 20231022
  2. ZYRTEC [Concomitant]
     Active Substance: CETIRIZINE HYDROCHLORIDE

REACTIONS (4)
  - Mydriasis [None]
  - Headache [None]
  - Blindness [None]
  - Accidental exposure to product [None]

NARRATIVE: CASE EVENT DATE: 20231021
